FAERS Safety Report 5295075-4 (Version None)
Quarter: 2007Q2

REPORT INFORMATION
  Report Type: 
  Country: None (occurrence: None)
  Receive Date: 20070412
  Receipt Date: 20070406
  Transmission Date: 20071010
  Serious: Yes (Hospitalization)
  Sender: FDA-Public Use
  Company Number: JP-ALLERGAN-0702856US

PATIENT
  Sex: Male

DRUGS (2)
  1. ALESION TABLET [Suspect]
     Indication: RHINITIS ALLERGIC
     Route: 048
     Dates: start: 20070209, end: 20070301
  2. CELESTONE [Concomitant]
     Indication: RHINITIS ALLERGIC
     Route: 048
     Dates: start: 20070209, end: 20070301

REACTIONS (1)
  - HEPATITIS [None]
